FAERS Safety Report 10262111 (Version 1)
Quarter: 2014Q2

REPORT INFORMATION
  Report Type: Spontaneous
  Country: US (occurrence: US)
  Receive Date: 20140626
  Receipt Date: 20140626
  Transmission Date: 20141212
  Serious: Yes (Other)
  Sender: FDA-Public Use
  Company Number: US-GLAXOSMITHKLINE-A1072125A

PATIENT
  Sex: Male

DRUGS (6)
  1. VOTRIENT [Suspect]
     Indication: RENAL CANCER
     Dosage: 4TAB AT NIGHT
     Route: 048
     Dates: start: 20140305
  2. HIGH BLOOD PRESSURE PILL [Concomitant]
  3. PROSTATE MEDICATION [Concomitant]
  4. LIPITOR [Concomitant]
  5. UNKNOWN MEDICATION [Concomitant]
     Indication: GOUT
  6. UNKNOWN MEDICATION [Concomitant]
     Indication: INNER EAR DISORDER

REACTIONS (10)
  - Aphagia [Not Recovered/Not Resolved]
  - Cheilitis [Recovering/Resolving]
  - Lip haemorrhage [Recovering/Resolving]
  - Glossodynia [Not Recovered/Not Resolved]
  - Dysgeusia [Recovering/Resolving]
  - Lip pain [Not Recovered/Not Resolved]
  - Burning sensation [Not Recovered/Not Resolved]
  - Photopsia [Not Recovered/Not Resolved]
  - Feeling hot [Not Recovered/Not Resolved]
  - Hyperhidrosis [Not Recovered/Not Resolved]
